FAERS Safety Report 8471359 (Version 6)
Quarter: 2012Q4

REPORT INFORMATION
  Report Type: 
  Country: BR (occurrence: BR)
  Receive Date: 20120322
  Receipt Date: 20121031
  Transmission Date: 20130627
  Serious: Yes (Death, Hospitalization, Other)
  Sender: FDA-Public Use
  Company Number: BR-AMGEN-BRASP2012016172

PATIENT
  Age: 78 Year
  Sex: Male
  Weight: 70 kg

DRUGS (5)
  1. ENBREL [Suspect]
     Indication: RHEUMATOID ARTHRITIS
     Dosage: 50 mg, 1x/week
     Route: 058
     Dates: start: 201003, end: 201201
  2. ENBREL [Suspect]
     Dosage: UNK
  3. MAREVAN [Concomitant]
     Indication: ARRHYTHMIA
     Dosage: UNK
  4. DIGOXIN [Concomitant]
     Indication: ARRHYTHMIA
     Dosage: UNK
  5. ARAVA [Concomitant]
     Indication: RHEUMATOID ARTHRITIS
     Dosage: UNK

REACTIONS (4)
  - Bone marrow disorder [Fatal]
  - Aplasia [Unknown]
  - Immunosuppression [Unknown]
  - Depression [Unknown]
